FAERS Safety Report 8228420-8 (Version None)
Quarter: 2012Q1

REPORT INFORMATION
  Report Type: 
  Country: None (occurrence: None)
  Receive Date: 20120322
  Receipt Date: 20110908
  Transmission Date: 20120608
  Serious: No
  Sender: FDA-Public Use
  Company Number: US-BRISTOL-MYERS SQUIBB COMPANY-15881469

PATIENT
  Age: 56 Year
  Sex: Male

DRUGS (1)
  1. ERBITUX [Suspect]
     Indication: LIP AND/OR ORAL CAVITY CANCER
     Dosage: INFUSION:IV WEEKLY X6
     Route: 042
     Dates: start: 20110623

REACTIONS (5)
  - ERYTHEMA [None]
  - SWELLING [None]
  - EXTRAVASATION [None]
  - ULCER [None]
  - PAIN [None]
